FAERS Safety Report 4563983-5 (Version None)
Quarter: 2005Q1

REPORT INFORMATION
  Report Type: 
  Country: None (occurrence: None)
  Receive Date: 20050128
  Receipt Date: 20050117
  Transmission Date: 20050727
  Serious: Yes (Other)
  Sender: FDA-Public Use
  Company Number: PL-JNJFOC-20050105443

PATIENT
  Age: 36 Year
  Sex: Female
  Weight: 64 kg

DRUGS (4)
  1. ORTHO EVRA [Suspect]
     Indication: CONTRACEPTION
     Route: 062
  2. PROPRANOLOL HYDROCHLORIDE [Concomitant]
     Dosage: TAKEN FOR SEVERAL YEARS
  3. NIFEDIPINE [Concomitant]
  4. HYDROCHLOROTHIAZIDE [Concomitant]

REACTIONS (4)
  - ARRHYTHMIA [None]
  - CHEST PAIN [None]
  - DYSPNOEA [None]
  - HYPERHIDROSIS [None]
